FAERS Safety Report 25320085 (Version 1)
Quarter: 2025Q2

REPORT INFORMATION
  Report Type: Spontaneous
  Country: US (occurrence: US)
  Receive Date: 20250515
  Receipt Date: 20250515
  Transmission Date: 20250716
  Serious: No
  Sender: ABBVIE
  Company Number: US-ABBVIE-6275117

PATIENT
  Age: 22 Year
  Sex: Female

DRUGS (2)
  1. CELEXA [Suspect]
     Active Substance: CITALOPRAM HYDROBROMIDE
     Indication: Generalised anxiety disorder
     Route: 048
  2. CELEXA [Suspect]
     Active Substance: CITALOPRAM HYDROBROMIDE
     Indication: Generalised anxiety disorder
     Route: 048
     Dates: start: 20250429

REACTIONS (5)
  - Anxiety [Unknown]
  - Panic attack [Unknown]
  - Off label use [Unknown]
  - Off label use [Unknown]
  - Fear [Unknown]

NARRATIVE: CASE EVENT DATE: 20250401
